FAERS Safety Report 7288846-6 (Version None)
Quarter: 2011Q1

REPORT INFORMATION
  Report Type: 
  Country: None (occurrence: None)
  Receive Date: 20110211
  Receipt Date: 20110202
  Transmission Date: 20110831
  Serious: Yes (Other)
  Sender: FDA-Public Use
  Company Number: CA-JNJFOC-20110201668

PATIENT
  Sex: Male
  Weight: 63 kg

DRUGS (2)
  1. INSULIN [Concomitant]
     Route: 058
  2. REMICADE [Suspect]
     Indication: RETINOPATHY
     Route: 042

REACTIONS (9)
  - HYPOTENSION [None]
  - INFUSION RELATED REACTION [None]
  - CHILLS [None]
  - HEART RATE INCREASED [None]
  - EPIGASTRIC DISCOMFORT [None]
  - NAUSEA [None]
  - MALAISE [None]
  - COLD SWEAT [None]
  - PALLOR [None]
